FAERS Safety Report 22195049 (Version 1)
Quarter: 2023Q2

REPORT INFORMATION
  Report Type: Spontaneous
  Country: ES (occurrence: ES)
  Receive Date: 20230411
  Receipt Date: 20230411
  Transmission Date: 20230722
  Serious: Yes (Other)
  Sender: FDA-Public Use
  Company Number: ES-009507513-2304ESP001666

PATIENT
  Age: 12 Year
  Sex: Male

DRUGS (1)
  1. LETERMOVIR [Suspect]
     Active Substance: LETERMOVIR
     Indication: Antiviral prophylaxis
     Dosage: UNK
     Route: 048

REACTIONS (3)
  - Cytomegalovirus infection reactivation [Unknown]
  - Drug ineffective [Unknown]
  - Off label use [Unknown]
